FAERS Safety Report 20138604 (Version 4)
Quarter: 2022Q1

REPORT INFORMATION
  Report Type: Spontaneous
  Country: US (occurrence: US)
  Receive Date: 20211202
  Receipt Date: 20220203
  Transmission Date: 20220423
  Serious: No
  Sender: FDA-Public Use
  Company Number: US-PFIZER INC-202101529695

PATIENT
  Age: 34 Year
  Sex: Female

DRUGS (2)
  1. DEPO-PROVERA [Suspect]
     Active Substance: MEDROXYPROGESTERONE ACETATE
     Indication: Contraception
     Dosage: 104MG / 0.65ML
  2. DEPO-PROVERA [Suspect]
     Active Substance: MEDROXYPROGESTERONE ACETATE
     Dosage: 104MG/0.65ML

REACTIONS (5)
  - Drug dose omission by device [Unknown]
  - Syringe issue [Unknown]
  - Device malfunction [Unknown]
  - Device breakage [Unknown]
  - Needle issue [Unknown]

NARRATIVE: CASE EVENT DATE: 20211001
